FAERS Safety Report 4591033-3 (Version None)
Quarter: 2005Q1

REPORT INFORMATION
  Report Type: 
  Country: None (occurrence: None)
  Receive Date: 20050225
  Receipt Date: 20050216
  Transmission Date: 20050727
  Serious: Yes (Disabling)
  Sender: FDA-Public Use
  Company Number: FR-BRISTOL-MYERS SQUIBB COMPANY-12867198

PATIENT
  Age: 37 Year
  Sex: Male

DRUGS (3)
  1. REYATAZ [Suspect]
     Route: 048
     Dates: start: 20050124, end: 20050205
  2. VIDEX [Concomitant]
  3. VIREAD [Concomitant]

REACTIONS (1)
  - ARTHRALGIA [None]
